FAERS Safety Report 6791212-0 (Version None)
Quarter: 2010Q2

REPORT INFORMATION
  Report Type: 
  Country: None (occurrence: None)
  Receive Date: 20100623
  Receipt Date: 20100623
  Transmission Date: 20101027
  Serious: Yes (Hospitalization)
  Sender: FDA-Public Use
  Company Number: None

PATIENT
  Age: 39 Year
  Sex: Female
  Weight: 81.6475 kg

DRUGS (1)
  1. HYDROXYCHLOROQUINE SULFATE [Suspect]
     Indication: SYSTEMIC LUPUS ERYTHEMATOSUS
     Dosage: 200 MG TWICE PER DAY
     Dates: start: 20090901, end: 20100404

REACTIONS (5)
  - BILIARY DILATATION [None]
  - CHOLELITHIASIS [None]
  - GALLBLADDER PAIN [None]
  - HEPATOMEGALY [None]
  - PANCREATIC DISORDER [None]
